FAERS Safety Report 20491726 (Version 1)
Quarter: 2022Q1

REPORT INFORMATION
  Report Type: Spontaneous
  Country: CA (occurrence: None)
  Receive Date: 20220218
  Receipt Date: 20220218
  Transmission Date: 20220424
  Serious: Yes (Other)
  Sender: FDA-Public Use
  Company Number: CA-ROCHE-3021538

PATIENT
  Age: 43 Year
  Sex: Female

DRUGS (5)
  1. CYTOXAN [Suspect]
     Active Substance: CYCLOPHOSPHAMIDE
     Indication: HER2 positive breast cancer
     Route: 065
  2. DOXORUBICIN HYDROCHLORIDE [Suspect]
     Active Substance: DOXORUBICIN HYDROCHLORIDE
     Indication: HER2 positive breast cancer
     Route: 065
  3. PACLITAXEL [Suspect]
     Active Substance: PACLITAXEL
     Indication: HER2 positive breast cancer
     Route: 042
  4. PERJETA [Suspect]
     Active Substance: PERTUZUMAB
     Indication: HER2 positive breast cancer
     Dosage: 14ML VIAL-CONCENTRATE SOL
     Route: 042
  5. TRASTUZUMAB [Suspect]
     Active Substance: TRASTUZUMAB
     Indication: HER2 positive breast cancer
     Route: 065

REACTIONS (9)
  - Anion gap decreased [Unknown]
  - Blood alkaline phosphatase decreased [Unknown]
  - Blood chloride increased [Unknown]
  - Blood pressure fluctuation [Unknown]
  - Haematocrit decreased [Unknown]
  - Haemoglobin decreased [Unknown]
  - Haemorrhoids [Unknown]
  - Red blood cell count decreased [Unknown]
  - White blood cell count decreased [Unknown]
